FAERS Safety Report 21756297 (Version 1)
Quarter: 2022Q4

REPORT INFORMATION
  Report Type: Spontaneous
  Country: CH (occurrence: CH)
  Receive Date: 20221220
  Receipt Date: 20221220
  Transmission Date: 20230112
  Serious: No
  Sender: FDA-Public Use
  Company Number: CH-JAZZ-2022-CH-037997

PATIENT
  Age: 37 Year
  Sex: Male

DRUGS (1)
  1. ZEPZELCA [Suspect]
     Active Substance: LURBINECTEDIN
     Indication: Peritoneal mesothelioma malignant
     Dosage: 3.2 MILLIGRAM/SQ. METER, Q3WK

REACTIONS (3)
  - Asthenia [Unknown]
  - Abdominal pain [Unknown]
  - Off label use [Unknown]
